FAERS Safety Report 18241250 (Version 2)
Quarter: 2022Q3

REPORT INFORMATION
  Report Type: Report from Study
  Country: US (occurrence: US)
  Receive Date: 20200908
  Receipt Date: 20220808
  Transmission Date: 20221026
  Serious: Yes (Other)
  Sender: FDA-Public Use
  Company Number: US-GLAXOSMITHKLINE-US2020AMR135421

PATIENT

DRUGS (3)
  1. BUPROPION HYDROCHLORIDE XL [Suspect]
     Active Substance: BUPROPION HYDROCHLORIDE
     Indication: Major depression
     Dosage: 450 MG, 1D (300 MG + 150 MG 1 IN 1 DAY)
     Route: 048
     Dates: start: 2014
  2. BUPROPION HYDROCHLORIDE XL [Suspect]
     Active Substance: BUPROPION HYDROCHLORIDE
     Indication: Anxiety
     Dosage: 450 MG (300 MG + 150 MG) ONCE DAILY (IN THE MORNING) AND 150 MG TABLET EVERY
     Route: 048
     Dates: start: 2014
  3. BUPROPION HYDROCHLORIDE XL [Suspect]
     Active Substance: BUPROPION HYDROCHLORIDE
     Indication: Depression
     Dosage: UNK, 300 MG AND 150 MG (SMALLER DOSE)
     Route: 048
     Dates: start: 2014

REACTIONS (5)
  - Disability [Not Recovered/Not Resolved]
  - Malaise [Unknown]
  - Therapy change [Unknown]
  - Inability to afford medication [Unknown]
  - Product use issue [Unknown]

NARRATIVE: CASE EVENT DATE: 20220628
